FAERS Safety Report 7386661-6 (Version None)
Quarter: 2011Q1

REPORT INFORMATION
  Report Type: 
  Country: None (occurrence: None)
  Receive Date: 20110331
  Receipt Date: 20110330
  Transmission Date: 20110831
  Serious: Yes (Life-Threatening, Hospitalization)
  Sender: FDA-Public Use
  Company Number: DE-ROCHE-768505

PATIENT
  Age: 55 Year
  Sex: Male
  Weight: 97.5 kg

DRUGS (3)
  1. TOCILIZUMAB [Suspect]
     Indication: RHEUMATOID ARTHRITIS
     Route: 042
     Dates: start: 20101103
  2. TOCILIZUMAB [Suspect]
     Route: 042
  3. NICHT-STEROIDALE ANTIRHEUMATIKA (NSAID) [Suspect]
     Indication: RHEUMATOID ARTHRITIS
     Route: 065

REACTIONS (2)
  - RENAL FAILURE ACUTE [None]
  - GASTROENTERITIS SALMONELLA [None]
